FAERS Safety Report 11157540 (Version 2)
Quarter: 2015Q2

REPORT INFORMATION
  Report Type: Spontaneous
  Country: GB (occurrence: GB)
  Receive Date: 20150603
  Receipt Date: 20150630
  Transmission Date: 20150821
  Serious: Yes (Death, Congenital Anomaly)
  Sender: FDA-Public Use
  Company Number: GB-TEVA-565624ACC

PATIENT

DRUGS (4)
  1. GABAPENTIN. [Suspect]
     Active Substance: GABAPENTIN
     Indication: EPILEPSY
     Dosage: 1100MG MANE, 800MG MIDDAY, 800MG NOCTE
     Route: 064
     Dates: start: 20140708
  2. FOLIC ACID. [Concomitant]
     Active Substance: FOLIC ACID
     Route: 064
  3. ASPIRIN. [Concomitant]
     Active Substance: ASPIRIN
  4. OMEPRAZOLE. [Concomitant]
     Active Substance: OMEPRAZOLE

REACTIONS (10)
  - Congenital hydronephrosis [Not Recovered/Not Resolved]
  - Placental insufficiency [Not Recovered/Not Resolved]
  - Ultrasound antenatal screen [Not Recovered/Not Resolved]
  - Foetal growth restriction [Fatal]
  - Placental infarction [Not Recovered/Not Resolved]
  - Foetal placental thrombosis [Not Recovered/Not Resolved]
  - Pyelocaliectasis [Not Recovered/Not Resolved]
  - Congenital bladder anomaly [Not Recovered/Not Resolved]
  - Stillbirth [Fatal]
  - Single umbilical artery [Not Recovered/Not Resolved]
